FAERS Safety Report 6127524-3 (Version None)
Quarter: 2009Q1

REPORT INFORMATION
  Report Type: 
  Country: None (occurrence: None)
  Receive Date: 20090319
  Receipt Date: 20090304
  Transmission Date: 20090719
  Serious: Yes (Hospitalization)
  Sender: FDA-Public Use
  Company Number: 2008PV000094

PATIENT
  Age: 68 Year
  Sex: Female

DRUGS (10)
  1. DEPOCYT [Suspect]
     Indication: PROPHYLAXIS
     Dosage: 50 MG; 3X; INTH
     Route: 037
     Dates: end: 20081002
  2. DEXAMETHASONE (CON.) [Concomitant]
  3. VINCRISTINE (CON.) [Concomitant]
  4. IDARUBICIN (CON.) [Concomitant]
  5. CYCLOPHOSPHAMIDE (CON.) [Concomitant]
  6. ARA-C (CON.) [Concomitant]
  7. MIRTAZAPINE (CON.) [Concomitant]
  8. LEVOFLOXACIN (CON.) [Concomitant]
  9. ACETAMINOPHEN (CON.) [Concomitant]
  10. L-THYROXIN (CON.) [Concomitant]

REACTIONS (11)
  - DEMYELINATION [None]
  - DIPLEGIA [None]
  - FAECAL INCONTINENCE [None]
  - GENERAL PHYSICAL HEALTH DETERIORATION [None]
  - GUILLAIN-BARRE SYNDROME [None]
  - MENINGITIS VIRAL [None]
  - NERVOUS SYSTEM DISORDER [None]
  - PAIN IN EXTREMITY [None]
  - PERIPHERAL SENSORY NEUROPATHY [None]
  - RADICULITIS [None]
  - URINARY INCONTINENCE [None]
